FAERS Safety Report 8541192-2 (Version None)
Quarter: 2012Q3

REPORT INFORMATION
  Report Type: 
  Country: None (occurrence: None)
  Receive Date: 20120726
  Receipt Date: 20120718
  Transmission Date: 20120928
  Serious: Yes (Death)
  Sender: FDA-Public Use
  Company Number: DE-ACTELION-A-US2012-69131

PATIENT

DRUGS (2)
  1. TRACLEER [Suspect]
     Indication: PULMONARY ARTERIAL HYPERTENSION
     Route: 048
  2. VENTAVIS [Suspect]
     Indication: PULMONARY ARTERIAL HYPERTENSION
     Dosage: 5.0
     Route: 055
     Dates: start: 20110327, end: 20120302

REACTIONS (6)
  - ABDOMINAL DISCOMFORT [None]
  - FATIGUE [None]
  - DEATH [None]
  - INSOMNIA [None]
  - ASTHENIA [None]
  - INCREASED UPPER AIRWAY SECRETION [None]
